FAERS Safety Report 25641498 (Version 1)
Quarter: 2025Q3

REPORT INFORMATION
  Report Type: Spontaneous
  Country: US (occurrence: US)
  Receive Date: 20250804
  Receipt Date: 20250804
  Transmission Date: 20251020
  Serious: No
  Sender: DIFGEN PHARMACEUTICALS LLC
  Company Number: US-Difgen-012104

PATIENT
  Sex: Male

DRUGS (3)
  1. NICOTINE [Suspect]
     Active Substance: NICOTINE
     Indication: Product used for unknown indication
     Route: 062
  2. NICOTINE [Suspect]
     Active Substance: NICOTINE
     Indication: Product used for unknown indication
     Route: 062
  3. NICOTINE [Suspect]
     Active Substance: NICOTINE
     Indication: Product used for unknown indication
     Route: 062

REACTIONS (6)
  - Feeling jittery [Recovered/Resolved]
  - Drug ineffective [Unknown]
  - Withdrawal syndrome [Recovered/Resolved]
  - Nervousness [Recovered/Resolved]
  - Product quality issue [Unknown]
  - Anxiety [Recovered/Resolved]
